FAERS Safety Report 4470189-7 (Version None)
Quarter: 2004Q3

REPORT INFORMATION
  Report Type: 
  Country: None (occurrence: None)
  Receive Date: 20040910
  Receipt Date: 20040805
  Transmission Date: 20050211
  Serious: No
  Sender: FDA-Public Use
  Company Number: 2004227424US

PATIENT
  Age: 72 Year
  Sex: Female
  Weight: 86.2 kg

DRUGS (4)
  1. BEXTRA [Suspect]
     Dosage: 20 MG, QD
     Dates: start: 20040701
  2. AVAPRO [Concomitant]
  3. FOSAMAX [Concomitant]
  4. CALCIUM [Concomitant]

REACTIONS (2)
  - BACK PAIN [None]
  - RENAL DISORDER [None]
